FAERS Safety Report 16883935 (Version 1)
Quarter: 2019Q4

REPORT INFORMATION
  Report Type: Spontaneous
  Country: US (occurrence: US)
  Receive Date: 20190808
  Receipt Date: 20190808
  Transmission Date: 20200122
  Serious: Yes (Hospitalization)
  Sender: FDA-Public Use
  Company Number: None

PATIENT
  Age: 76 Year
  Sex: Female
  Weight: 58.5 kg

DRUGS (5)
  1. RITUXUMAB [Suspect]
     Active Substance: RITUXIMAB
  2. CYCLOPHOSPHAMIDE. [Suspect]
     Active Substance: CYCLOPHOSPHAMIDE
  3. DOXORUBICIN HYDROCHLORIDE. [Suspect]
     Active Substance: DOXORUBICIN HYDROCHLORIDE
  4. VINCRISTINE SULFATE. [Suspect]
     Active Substance: VINCRISTINE SULFATE
  5. PREDNISONE. [Suspect]
     Active Substance: PREDNISONE

REACTIONS (7)
  - White blood cell count decreased [None]
  - Lung opacity [None]
  - Anaemia [None]
  - Pneumonia [None]
  - Pyrexia [None]
  - Pleural effusion [None]
  - Erythema [None]

NARRATIVE: CASE EVENT DATE: 20190805
